FAERS Safety Report 16177825 (Version 1)
Quarter: 2019Q2

REPORT INFORMATION
  Report Type: Spontaneous
  Country: US (occurrence: US)
  Receive Date: 20190410
  Receipt Date: 20190410
  Transmission Date: 20190711
  Serious: No
  Sender: FDA-Public Use
  Company Number: US-009507513-1903USA005734

PATIENT
  Sex: Female

DRUGS (1)
  1. NEXPLANON [Suspect]
     Active Substance: ETONOGESTREL
     Dosage: 68MG, 1 ROD SUBDERMALLY EVERY 3 YEARS
     Route: 059

REACTIONS (1)
  - Complication associated with device [Not Recovered/Not Resolved]
